FAERS Safety Report 11458874 (Version 1)
Quarter: 2015Q3

REPORT INFORMATION
  Report Type: Spontaneous
  Country: AU (occurrence: AU)
  Receive Date: 20150904
  Receipt Date: 20150904
  Transmission Date: 20151125
  Serious: Yes (Other)
  Sender: FDA-Public Use
  Company Number: AU-JNJFOC-20150902435

PATIENT
  Age: 74 Year
  Sex: Female

DRUGS (2)
  1. XARELTO [Suspect]
     Active Substance: RIVAROXABAN
     Indication: CEREBROVASCULAR ACCIDENT PROPHYLAXIS
     Route: 048
     Dates: start: 2012
  2. XARELTO [Suspect]
     Active Substance: RIVAROXABAN
     Indication: ATRIAL FIBRILLATION
     Route: 048
     Dates: start: 2012

REACTIONS (8)
  - Haemoptysis [Unknown]
  - Fatigue [Unknown]
  - Arthralgia [Unknown]
  - Pulmonary embolism [Unknown]
  - Myalgia [Unknown]
  - Dizziness [Unknown]
  - Feeling abnormal [Unknown]
  - Headache [Unknown]
